FAERS Safety Report 11180260 (Version 16)
Quarter: 2020Q3

REPORT INFORMATION
  Report Type: Other
  Country: DE (occurrence: DE)
  Receive Date: 20150611
  Receipt Date: 20200908
  Transmission Date: 20201102
  Serious: Yes (Hospitalization, Other)
  Sender: FDA-Public Use
  Company Number: DE-ROCHE-1592562

PATIENT
  Age: 59 Year
  Sex: Male

DRUGS (17)
  1. ROACTEMRA [Suspect]
     Active Substance: TOCILIZUMAB
     Indication: RHEUMATOID ARTHRITIS
     Route: 058
     Dates: start: 20140801
  2. SYNTESTAN [Concomitant]
     Active Substance: CLOPREDNOL
     Route: 065
  3. OMEPRAZOLE. [Concomitant]
     Active Substance: OMEPRAZOLE
  4. ROACTEMRA [Suspect]
     Active Substance: TOCILIZUMAB
     Indication: RHEUMATOID ARTHRITIS
     Route: 042
     Dates: start: 20090101, end: 20140701
  5. BETAVERT [Suspect]
     Active Substance: BETAHISTINE
     Indication: PRODUCT USED FOR UNKNOWN INDICATION
     Route: 065
  6. IDEOS [Concomitant]
     Active Substance: CALCIUM CARBONATE\CHOLECALCIFEROL
     Dosage: FOR SOFT TISSUE RHEUMATISM
     Route: 065
  7. ROACTEMRA [Suspect]
     Active Substance: TOCILIZUMAB
     Route: 058
     Dates: start: 20200521
  8. ROACTEMRA [Suspect]
     Active Substance: TOCILIZUMAB
     Route: 058
     Dates: start: 202005, end: 20200528
  9. NOVAMINSULFON [Concomitant]
     Active Substance: METAMIZOLE
     Route: 065
  10. ASA [Concomitant]
     Active Substance: ASPIRIN
  11. ROACTEMRA [Suspect]
     Active Substance: TOCILIZUMAB
     Route: 058
  12. ROACTEMRA [Suspect]
     Active Substance: TOCILIZUMAB
     Route: 058
  13. NOVAMINSULFON [Concomitant]
     Active Substance: METAMIZOLE
     Route: 065
  14. BUPRENORPHIN [Concomitant]
     Active Substance: BUPRENORPHINE
     Route: 065
  15. ALENDRONIC ACID [Concomitant]
     Active Substance: ALENDRONIC ACID
     Dosage: AS BONE REGENERATION
     Route: 065
  16. BETAVERT [Suspect]
     Active Substance: BETAHISTINE
     Dosage: 30 MG AND 40 MG ALTERNATING
     Route: 065
  17. SYNTESTAN [Concomitant]
     Active Substance: CLOPREDNOL
     Route: 065

REACTIONS (23)
  - Arthritis [Recovered/Resolved]
  - Peripheral swelling [Recovered/Resolved]
  - Back pain [Unknown]
  - Vasoconstriction [Not Recovered/Not Resolved]
  - Hypertension [Not Recovered/Not Resolved]
  - Diarrhoea [Recovered/Resolved]
  - Balance disorder [Recovering/Resolving]
  - Nausea [Recovering/Resolving]
  - Alopecia [Not Recovered/Not Resolved]
  - Syncope [Recovered/Resolved]
  - Arthralgia [Not Recovered/Not Resolved]
  - Therapeutic product effect decreased [Unknown]
  - Spinal pain [Recovered/Resolved]
  - Deafness unilateral [Not Recovered/Not Resolved]
  - Confusional state [Recovered/Resolved]
  - Peripheral vein occlusion [Recovered/Resolved]
  - Respiratory tract oedema [Recovered/Resolved]
  - Rheumatoid arthritis [Recovered/Resolved]
  - Coccydynia [Not Recovered/Not Resolved]
  - Rash [Not Recovered/Not Resolved]
  - Arthralgia [Recovered/Resolved]
  - Fatigue [Recovered/Resolved]
  - Blood iron increased [Recovered/Resolved]

NARRATIVE: CASE EVENT DATE: 2009
